FAERS Safety Report 16395692 (Version 2)
Quarter: 2019Q2

REPORT INFORMATION
  Report Type: Spontaneous
  Country: FR (occurrence: FR)
  Receive Date: 20190605
  Receipt Date: 20190614
  Transmission Date: 20190711
  Serious: Yes (Hospitalization)
  Sender: FDA-Public Use
  Company Number: FR-INDIVIOR LIMITED-INDV-119856-2019

PATIENT
  Age: 42 Year
  Sex: Female

DRUGS (8)
  1. ALCOHOL. [Suspect]
     Active Substance: ALCOHOL
     Indication: ALCOHOL USE
     Dosage: 13 INTERNATIONAL UNIT, QD
     Route: 048
     Dates: start: 1991
  2. SUBUTEX [Suspect]
     Active Substance: BUPRENORPHINE HYDROCHLORIDE
     Dosage: UNK (SMOKING SUBUTEX)
     Route: 055
  3. XANAX [Suspect]
     Active Substance: ALPRAZOLAM
     Dosage: 4 DF PER DAY
     Route: 048
     Dates: start: 2003
  4. SUBUTEX [Suspect]
     Active Substance: BUPRENORPHINE HYDROCHLORIDE
     Indication: PRODUCT USED FOR UNKNOWN INDICATION
     Dosage: UNK
     Route: 060
     Dates: end: 1993
  5. LSD [Suspect]
     Active Substance: LYSERGIDE
     Indication: PRODUCT USED FOR UNKNOWN INDICATION
     Dosage: UNK
     Route: 048
  6. SUBUTEX [Suspect]
     Active Substance: BUPRENORPHINE HYDROCHLORIDE
     Dosage: UNK (SNORTING SUBUTEX)
     Route: 045
  7. NICOTIANA TABACUM [Suspect]
     Active Substance: TOBACCO LEAF
     Indication: TOBACCO USER
     Dosage: 20 CIGARETTES PER DAY
     Route: 055
     Dates: start: 1991
  8. XANAX [Suspect]
     Active Substance: ALPRAZOLAM
     Indication: ANXIETY
     Dosage: 0.5 MG, (1-2 DF PER DAY)
     Route: 065

REACTIONS (6)
  - Intentional product use issue [Recovered/Resolved]
  - Hypoalbuminaemia [Recovering/Resolving]
  - Drug abuse [Recovered/Resolved]
  - Macrocytosis [Recovering/Resolving]
  - Extrasystoles [Recovering/Resolving]
  - Substance dependence [Not Recovered/Not Resolved]

NARRATIVE: CASE EVENT DATE: 1991
